FAERS Safety Report 5957969-3 (Version None)
Quarter: 2008Q4

REPORT INFORMATION
  Report Type: 
  Country: None (occurrence: None)
  Receive Date: 20081119
  Receipt Date: 20081106
  Transmission Date: 20090506
  Serious: Yes (Hospitalization)
  Sender: FDA-Public Use
  Company Number: US-AMGEN-QUU316199

PATIENT
  Age: 65 Year
  Sex: Female
  Weight: 65.2 kg

DRUGS (3)
  1. NEULASTA [Suspect]
     Indication: CHEMOTHERAPY
     Route: 058
     Dates: start: 20080926
  2. CARBOPLATIN [Concomitant]
     Dates: start: 20080925
  3. TAXOL [Concomitant]
     Dates: start: 20080925

REACTIONS (1)
  - PLEURAL EFFUSION [None]
